FAERS Safety Report 8589802 (Version 3)
Quarter: 2013Q1

REPORT INFORMATION
  Report Type: Spontaneous
  Country: US (occurrence: US)
  Receive Date: 20120601
  Receipt Date: 20130215
  Transmission Date: 20140127
  Serious: No
  Sender: FDA-Public Use
  Company Number: US-PFIZER INC-2012129230

PATIENT
  Age: 51 Year
  Sex: Female
  Weight: 55 kg

DRUGS (7)
  1. LYRICA [Suspect]
     Indication: PERIPHERAL NERVE INJURY
     Dosage: 75 MG, 2X/DAY
     Route: 048
     Dates: start: 201106, end: 20120518
  2. LYRICA [Suspect]
     Indication: FIBROMYALGIA
     Dosage: 75 MG, 2X/DAY
     Dates: end: 201210
  3. LYRICA [Suspect]
     Indication: NERVE INJURY
  4. ATIVAN [Suspect]
     Indication: ANXIETY
     Dosage: 0.1 MG, DAILY
  5. ATIVAN [Suspect]
     Indication: PALPITATIONS
  6. HYDROCODONE [Suspect]
     Indication: BACK INJURY
     Dosage: UNK, 2X/DAY
  7. VALIUM [Concomitant]
     Dosage: UNK

REACTIONS (6)
  - Fibromyalgia [Not Recovered/Not Resolved]
  - Withdrawal syndrome [Not Recovered/Not Resolved]
  - Muscle twitching [Not Recovered/Not Resolved]
  - Pain [Not Recovered/Not Resolved]
  - Diarrhoea [Not Recovered/Not Resolved]
  - Sleep disorder [Not Recovered/Not Resolved]
